FAERS Safety Report 6468570-X (Version None)
Quarter: 2009Q4

REPORT INFORMATION
  Report Type: 
  Country: None (occurrence: None)
  Receive Date: 20091202
  Receipt Date: 20091202
  Transmission Date: 20100525
  Serious: Yes (Other)
  Sender: FDA-Public Use
  Company Number: None

PATIENT
  Sex: Male
  Weight: 56 kg

DRUGS (11)
  1. SORAFENIB [Suspect]
     Indication: PROSTATE CANCER
     Dosage: 400MG PO - BID PO
     Route: 048
     Dates: start: 20090817
  2. MITOXANTRONE [Suspect]
     Indication: PROSTATE CANCER
     Dosage: 20 MG Q 3 WEEKS IV
     Route: 042
     Dates: start: 20090817
  3. PREDNISONE [Concomitant]
  4. PROCHLORPERAZINE MALEATE [Concomitant]
  5. PEGFILGRASTIM [Concomitant]
  6. LUPRON [Concomitant]
  7. TYLENOL (CAPLET) [Concomitant]
  8. ZOMETA [Concomitant]
  9. NIFEDIPINE [Concomitant]
  10. MEGACE [Concomitant]
  11. POTASSIUM CHLORIDE [Concomitant]

REACTIONS (6)
  - DEEP VEIN THROMBOSIS [None]
  - FATIGUE [None]
  - LUNG INFILTRATION [None]
  - PNEUMONIA [None]
  - POSTNASAL DRIP [None]
  - PULMONARY FIBROSIS [None]
